FAERS Safety Report 6141114-8 (Version None)
Quarter: 2009Q2

REPORT INFORMATION
  Report Type: 
  Country: None (occurrence: None)
  Receive Date: 20090402
  Receipt Date: 20090330
  Transmission Date: 20091009
  Serious: Yes (Life-Threatening, Hospitalization)
  Sender: FDA-Public Use
  Company Number: US-BAYER-200910157BCC

PATIENT
  Age: 47 Year
  Sex: Female
  Weight: 59 kg

DRUGS (1)
  1. ALEVE [Suspect]
     Indication: FRACTURE
     Dosage: TOOK BETWEEN 1-3 TABLETS AS NEEDED
     Dates: start: 20010101, end: 20080401

REACTIONS (7)
  - ACUTE HEPATIC FAILURE [None]
  - ASTHENIA [None]
  - MOBILITY DECREASED [None]
  - MUSCLE CONTRACTIONS INVOLUNTARY [None]
  - MYOCARDIAL INFARCTION [None]
  - PAIN [None]
  - PULMONARY OEDEMA [None]
